FAERS Safety Report 9656777 (Version 1)
Quarter: 2013Q4

REPORT INFORMATION
  Report Type: Spontaneous
  Country: AT (occurrence: AT)
  Receive Date: 20131030
  Receipt Date: 20131030
  Transmission Date: 20140711
  Serious: Yes (Hospitalization)
  Sender: FDA-Public Use
  Company Number: AT-PFIZER INC-2013304400

PATIENT
  Sex: Male

DRUGS (1)
  1. SALAZOPYRIN [Suspect]

REACTIONS (1)
  - Accident [Unknown]
